FAERS Safety Report 6371961-9 (Version None)
Quarter: 2009Q3

REPORT INFORMATION
  Report Type: 
  Country: None (occurrence: None)
  Receive Date: 20090917
  Receipt Date: 20090904
  Transmission Date: 20100115
  Serious: Yes (Other)
  Sender: FDA-Public Use
  Company Number: ADR19112009

PATIENT
  Age: 42 Year
  Sex: Female

DRUGS (11)
  1. SALBUTAMOL (MFR: UNKNOWN) [Suspect]
     Dosage: INHALATION USE
     Route: 055
  2. SYMICORT (2DF) [Concomitant]
  3. ALENDRONATE SODIUM [Concomitant]
  4. CALCICHEW D3 [Concomitant]
  5. CLARITHROMYCIN [Concomitant]
  6. LANSOPRAZOLE [Concomitant]
  7. METFORMIN HCL [Concomitant]
  8. PREDNISOLONE [Concomitant]
  9. QVAR 40 [Concomitant]
  10. REPAGLINIDE [Concomitant]
  11. UNIPHYLLIN CONTINUES [Concomitant]

REACTIONS (4)
  - DRUG ADMINISTRATION ERROR [None]
  - HYPOKALAEMIA [None]
  - HYPOXIA [None]
  - OVERDOSE [None]
